FAERS Safety Report 8350038-7 (Version None)
Quarter: 2012Q2

REPORT INFORMATION
  Report Type: 
  Country: None (occurrence: None)
  Receive Date: 20120510
  Receipt Date: 20120502
  Transmission Date: 20120825
  Serious: Yes (Hospitalization)
  Sender: FDA-Public Use
  Company Number: FR-ACTELION-A-CH2012-65089

PATIENT
  Age: 77 Year
  Sex: Female

DRUGS (8)
  1. LASIX [Concomitant]
  2. REVATIO [Suspect]
     Dosage: UNK
     Dates: start: 20120316, end: 20120403
  3. POTASSIUM CHLORIDE [Concomitant]
  4. IMODIUM [Concomitant]
  5. TRAMADOL HCL [Concomitant]
  6. TRACLEER [Suspect]
     Indication: PULMONARY ARTERIAL HYPERTENSION
     Dosage: UNK
     Route: 048
     Dates: start: 20120410, end: 20120401
  7. ACETAMINOPHEN [Concomitant]
  8. TRACLEER [Suspect]
     Dosage: UNK
     Route: 048
     Dates: start: 20120316, end: 20120403

REACTIONS (9)
  - HYPERSENSITIVITY [None]
  - EOSINOPHILIA [None]
  - BLOOD ALKALINE PHOSPHATASE INCREASED [None]
  - GAMMA-GLUTAMYLTRANSFERASE INCREASED [None]
  - DRUG RASH WITH EOSINOPHILIA AND SYSTEMIC SYMPTOMS [None]
  - CYTOLYTIC HEPATITIS [None]
  - CHOLESTASIS [None]
  - ASPARTATE AMINOTRANSFERASE INCREASED [None]
  - ALANINE AMINOTRANSFERASE INCREASED [None]
